FAERS Safety Report 5250453-4 (Version None)
Quarter: 2007Q1

REPORT INFORMATION
  Report Type: 
  Country: None (occurrence: None)
  Receive Date: 20070228
  Receipt Date: 20060502
  Transmission Date: 20070707
  Serious: No
  Sender: FDA-Public Use
  Company Number: US-GLAXOSMITHKLINE-A0602180A

PATIENT
  Age: 44 Year
  Sex: Female

DRUGS (5)
  1. LAMICTAL [Suspect]
     Indication: BIPOLAR DISORDER
     Route: 048
     Dates: start: 20060322, end: 20060411
  2. DEPAKOTE [Concomitant]
     Route: 048
     Dates: start: 20060302, end: 20060307
  3. CYMBALTA [Concomitant]
     Route: 048
     Dates: start: 20060222, end: 20060322
  4. GABITRIL [Concomitant]
     Route: 048
     Dates: start: 20060322, end: 20060325
  5. AMBIEN [Concomitant]
     Route: 048
     Dates: start: 20060307, end: 20060322

REACTIONS (1)
  - RASH GENERALISED [None]
